FAERS Safety Report 13037460 (Version 1)
Quarter: 2016Q4

REPORT INFORMATION
  Report Type: Spontaneous
  Country: US (occurrence: US)
  Receive Date: 20161216
  Receipt Date: 20161216
  Transmission Date: 20170207
  Serious: No
  Sender: FDA-Public Use
  Company Number: US-ASTRAZENECA-2016SF25836

PATIENT
  Age: 16878 Day
  Sex: Female
  Weight: 90.7 kg

DRUGS (9)
  1. NOVOLOG [Concomitant]
     Active Substance: INSULIN ASPART
     Indication: DIABETES MELLITUS
     Route: 058
     Dates: start: 20160927
  2. METFORMIN [Concomitant]
     Active Substance: METFORMIN HYDROCHLORIDE
     Indication: DIABETES MELLITUS
     Route: 048
     Dates: start: 20160905
  3. BYDUREON [Suspect]
     Active Substance: EXENATIDE
     Indication: TYPE 2 DIABETES MELLITUS
     Dosage: UNKNOWN, ONCE A WEEK
     Route: 058
     Dates: start: 20161109
  4. LANTUS [Concomitant]
     Active Substance: INSULIN GLARGINE
     Indication: DIABETES MELLITUS
     Route: 058
     Dates: start: 20161025
  5. XYLOCAINE [Concomitant]
     Active Substance: LIDOCAINE HYDROCHLORIDE
     Dosage: 2.0ML ONCE/SINGLE ADMINISTRATION
     Dates: start: 20161107, end: 20161107
  6. MELOXICAM. [Concomitant]
     Active Substance: MELOXICAM
     Indication: BURSITIS
     Route: 048
     Dates: start: 20161107
  7. MARCAINE [Concomitant]
     Active Substance: BUPIVACAINE HYDROCHLORIDE
     Dosage: 2.0ML ONCE/SINGLE ADMINISTRATION
     Dates: start: 20161107, end: 20161107
  8. CELESTONE [Concomitant]
     Active Substance: BETAMETHASONE
     Indication: BURSITIS
     Dosage: 12.0MG ONCE/SINGLE ADMINISTRATION
     Dates: start: 20161107, end: 20161107
  9. LEVOFLOXACIN. [Concomitant]
     Active Substance: LEVOFLOXACIN
     Route: 048

REACTIONS (9)
  - Cough [Not Recovered/Not Resolved]
  - Blood glucose decreased [Unknown]
  - Pruritus [Not Recovered/Not Resolved]
  - Injection site pruritus [None]
  - Injection site nodule [Recovered/Resolved]
  - Rhinorrhoea [Not Recovered/Not Resolved]
  - Bronchitis [Unknown]
  - Dyspnoea [Recovered/Resolved]
  - Nasopharyngitis [Not Recovered/Not Resolved]

NARRATIVE: CASE EVENT DATE: 20161109
